FAERS Safety Report 7069614-7 (Version None)
Quarter: 2010Q4

REPORT INFORMATION
  Report Type: 
  Country: None (occurrence: None)
  Receive Date: 20101028
  Receipt Date: 20100421
  Transmission Date: 20110411
  Serious: No
  Sender: FDA-Public Use
  Company Number: US-WYE-H14750810

PATIENT
  Sex: Female
  Weight: 86.26 kg

DRUGS (8)
  1. PANTOPRAZOLE [Suspect]
     Indication: GASTROOESOPHAGEAL REFLUX DISEASE
     Dates: start: 20090101
  2. PANTOPRAZOLE [Suspect]
     Indication: GASTRIC DISORDER
  3. OXYCODONE HCL AND ACETAMINOPHEN [Suspect]
     Indication: POLYMYALGIA RHEUMATICA
     Dosage: FOUR 10/325 MG DAILY
     Dates: start: 20090101
  4. LOVAZA [Concomitant]
  5. CARAFATE [Concomitant]
  6. VITAMINS [Concomitant]
  7. PREDNISONE [Suspect]
     Indication: POLYMYALGIA RHEUMATICA
     Dosage: UNKNOWN
     Dates: start: 20070101
  8. LIPITOR [Concomitant]

REACTIONS (5)
  - DECREASED APPETITE [None]
  - GASTROOESOPHAGEAL REFLUX DISEASE [None]
  - NAUSEA [None]
  - PAIN [None]
  - SPINAL FRACTURE [None]
